FAERS Safety Report 17497292 (Version 1)
Quarter: 2020Q1

REPORT INFORMATION
  Report Type: Report from Study
  Country: US (occurrence: US)
  Receive Date: 20200304
  Receipt Date: 20200304
  Transmission Date: 20200409
  Serious: Yes (Hospitalization)
  Sender: FDA-Public Use
  Company Number: US-BAYER-2020-038223

PATIENT
  Age: 84 Year
  Sex: Male

DRUGS (1)
  1. STIVARGA [Suspect]
     Active Substance: REGORAFENIB
     Indication: COLORECTAL CANCER
     Dosage: 40 MG EVERY THREE DAYS
     Route: 048
     Dates: start: 20200103, end: 2020

REACTIONS (3)
  - Drug ineffective [None]
  - Off label use [None]
  - Malaise [Unknown]

NARRATIVE: CASE EVENT DATE: 20200103
